FAERS Safety Report 7742593-2 (Version None)
Quarter: 2011Q3

REPORT INFORMATION
  Report Type: 
  Country: None (occurrence: None)
  Receive Date: 20110912
  Receipt Date: 20110905
  Transmission Date: 20111222
  Serious: Yes (Death, Other)
  Sender: FDA-Public Use
  Company Number: PHHY2011DE55986

PATIENT
  Sex: Male
  Weight: 101 kg

DRUGS (14)
  1. RAMIPRIL [Suspect]
     Indication: HYPERTENSION
     Dosage: 10 MG, QD
     Route: 048
     Dates: start: 20090112, end: 20091203
  2. METFORMIN HCL [Suspect]
     Indication: DIABETES MELLITUS
     Dosage: 500 MG, QD
     Route: 058
     Dates: start: 20091203, end: 20091203
  3. ANGIOTENSIN II ANTAGONISTS [Concomitant]
     Dosage: UNK
     Dates: start: 20090430
  4. MOXONIDINE [Suspect]
     Indication: HYPERTENSION
     Dosage: 0.5 MG, QD
     Route: 048
     Dates: start: 20090212, end: 20091203
  5. ALISKIREN [Suspect]
     Indication: HYPERTENSION
     Dosage: 300 MG, QD
     Route: 048
     Dates: start: 20090112, end: 20091203
  6. SPIRONOLACTONE [Suspect]
     Indication: HYPERTENSION
     Dosage: 50 MG, QD
     Route: 048
     Dates: start: 20090112, end: 20091203
  7. ATACAND [Suspect]
     Indication: HYPERTENSION
     Dosage: 32 MG, QD
     Route: 048
     Dates: start: 20090112, end: 20091203
  8. ACE INHIBITOR NOS [Concomitant]
     Dosage: UNK
     Dates: start: 20090430
  9. LERCANIDIPINE [Suspect]
     Dosage: 20 MG, QD
     Route: 048
     Dates: start: 20090112, end: 20091203
  10. INSUMAN [Suspect]
     Indication: DIABETES MELLITUS
     Dosage: 88 IU, QD
     Route: 058
     Dates: start: 20090112, end: 20091203
  11. LANTUS [Suspect]
     Indication: DIABETES MELLITUS
     Dosage: 10 IU, QD
     Route: 058
     Dates: start: 20090112, end: 20091203
  12. HYDROCHLOROTHIAZIDE [Suspect]
     Indication: HYPERTENSION
     Dosage: 25 MG, QD
     Route: 048
     Dates: start: 20090112, end: 20091203
  13. NEBIVOLOL HCL [Suspect]
     Indication: HYPERTENSION
     Dosage: 5 MG, QD
     Route: 048
     Dates: start: 20090112, end: 20091203
  14. SIMVASTATIN [Suspect]
     Indication: HYPERLIPIDAEMIA
     Dosage: 80 MG, QD
     Route: 048
     Dates: start: 20090219, end: 20091203

REACTIONS (7)
  - BLOOD PRESSURE INCREASED [None]
  - HEMIPLEGIA [None]
  - DEATH [None]
  - DYSPNOEA [None]
  - HYPOGLYCAEMIA [None]
  - NASOPHARYNGITIS [None]
  - GLYCOSYLATED HAEMOGLOBIN INCREASED [None]
